FAERS Safety Report 11661163 (Version 1)
Quarter: 2015Q4

REPORT INFORMATION
  Report Type: Spontaneous
  Country: NL (occurrence: NL)
  Receive Date: 20151026
  Receipt Date: 20151026
  Transmission Date: 20160304
  Serious: Yes (Other)
  Sender: FDA-Public Use
  Company Number: NL-CIPLA LTD.-2015NL08256

PATIENT

DRUGS (3)
  1. DOXORUBICIN [Suspect]
     Active Substance: DOXORUBICIN
     Indication: OVARIAN CANCER
     Dosage: 50 MG/M2, ON DAY 1, Q4 WEEKS FOR SIX CYCLES
     Route: 042
  2. TOCILIZUMAB [Suspect]
     Active Substance: TOCILIZUMAB
     Indication: OVARIAN CANCER
     Dosage: 2 MG/KG ON DAY 1, Q4 WEEKS DURING THE FIRST THREE CYCLES OF CHEMOTHERAPY
     Route: 042
  3. CARBOPLATIN. [Suspect]
     Active Substance: CARBOPLATIN
     Indication: OVARIAN CANCER
     Dosage: AUC 5 ON DAY 1, Q4 WEEKS FOR SIX CYCLES
     Route: 065

REACTIONS (1)
  - Disease progression [Unknown]
